FAERS Safety Report 16795235 (Version 2)
Quarter: 2019Q3

REPORT INFORMATION
  Report Type: Report from Study
  Country: JP (occurrence: JP)
  Receive Date: 20190911
  Receipt Date: 20190912
  Transmission Date: 20191005
  Serious: Yes (Life-Threatening, Other)
  Sender: FDA-Public Use
  Company Number: JP-TAKEDA-2019TUS051513

PATIENT

DRUGS (8)
  1. CYCLOPHOSPHAMIDE. [Suspect]
     Active Substance: CYCLOPHOSPHAMIDE
     Indication: PLASMA CELL MYELOMA
     Dosage: 500 MILLIGRAM/SQ. METER
     Route: 042
  2. CYCLOPHOSPHAMIDE. [Suspect]
     Active Substance: CYCLOPHOSPHAMIDE
     Dosage: 300 MILLIGRAM/SQ. METER
     Route: 042
  3. DEXAMETHASONE. [Suspect]
     Active Substance: DEXAMETHASONE
     Dosage: 40 MILLIGRAM
     Route: 048
  4. MELPHALAN. [Suspect]
     Active Substance: MELPHALAN
     Indication: PLASMA CELL MYELOMA
     Dosage: UNK
     Route: 065
  5. CYCLOPHOSPHAMIDE. [Suspect]
     Active Substance: CYCLOPHOSPHAMIDE
     Dosage: UNK
     Route: 042
  6. THALIDOMIDE [Suspect]
     Active Substance: THALIDOMIDE
     Indication: PLASMA CELL MYELOMA
     Dosage: 100 MILLIGRAM, QD
     Route: 048
  7. BORTEZOMIB. [Suspect]
     Active Substance: BORTEZOMIB
     Indication: PLASMA CELL MYELOMA
     Dosage: 1.3 MILLIGRAM/SQ. METER
     Route: 042
  8. DEXAMETHASONE. [Suspect]
     Active Substance: DEXAMETHASONE
     Indication: PLASMA CELL MYELOMA
     Dosage: 40 MILLIGRAM
     Route: 048

REACTIONS (28)
  - Gastrointestinal disorder [Unknown]
  - Prostate cancer stage II [Unknown]
  - Hypernatraemia [Unknown]
  - Vomiting [Unknown]
  - Infection [Unknown]
  - Febrile neutropenia [Unknown]
  - Cellulitis [Unknown]
  - Fatigue [Unknown]
  - Pulmonary embolism [Unknown]
  - Hyperglycaemia [Unknown]
  - Liver disorder [Unknown]
  - Neutropenia [Unknown]
  - Thrombocytopenia [Unknown]
  - Diarrhoea [Unknown]
  - Rash [Unknown]
  - Cytomegalovirus infection [Unknown]
  - Decreased appetite [Unknown]
  - C-reactive protein increased [Unknown]
  - Anaemia [Unknown]
  - Nausea [Unknown]
  - Herpes zoster meningoencephalitis [Unknown]
  - Hypokalaemia [Unknown]
  - Sepsis [Unknown]
  - Stomatitis [Unknown]
  - Peripheral sensory neuropathy [Unknown]
  - Herpes zoster [Unknown]
  - Herpes simplex [Unknown]
  - Pancreatitis [Unknown]
